FAERS Safety Report 5072280-3 (Version None)
Quarter: 2006Q3

REPORT INFORMATION
  Report Type: 
  Country: None (occurrence: None)
  Receive Date: 20060807
  Receipt Date: 20060726
  Transmission Date: 20061208
  Serious: Yes (Hospitalization, Other)
  Sender: FDA-Public Use
  Company Number: BR-JNJFOC-20060705908

PATIENT
  Age: 5 Year
  Sex: Female

DRUGS (2)
  1. HALDOL [Suspect]
     Indication: ACCIDENTAL EXPOSURE
     Route: 048
  2. CHLORPROMAZINE [Suspect]
     Indication: ACCIDENTAL EXPOSURE
     Route: 048

REACTIONS (4)
  - ACCIDENTAL EXPOSURE [None]
  - MIOSIS [None]
  - TACHYCARDIA [None]
  - TREMOR [None]
